FAERS Safety Report 5825842-7 (Version None)
Quarter: 2008Q3

REPORT INFORMATION
  Report Type: 
  Country: None (occurrence: None)
  Receive Date: 20080729
  Receipt Date: 20080213
  Transmission Date: 20090109
  Serious: No
  Sender: FDA-Public Use
  Company Number: US-BAUSCH-2008BL000643

PATIENT
  Age: 68 Year
  Sex: Female

DRUGS (1)
  1. CROMOLYN SODIUM [Suspect]
     Indication: RHINITIS ALLERGIC
     Route: 045
     Dates: start: 20071001, end: 20080212

REACTIONS (5)
  - COUGH [None]
  - EPISTAXIS [None]
  - HEADACHE [None]
  - NASAL DISCOMFORT [None]
  - VIRAL INFECTION [None]
